FAERS Safety Report 21967391 (Version 1)
Quarter: 2023Q1

REPORT INFORMATION
  Report Type: Spontaneous
  Country: JP (occurrence: JP)
  Receive Date: 20230208
  Receipt Date: 20230208
  Transmission Date: 20230418
  Serious: Yes (Other)
  Sender: FDA-Public Use
  Company Number: JP-AMGEN-JPNSP2022199050

PATIENT
  Age: 59 Year
  Sex: Female

DRUGS (3)
  1. EVENITY [Suspect]
     Active Substance: ROMOSOZUMAB-AQQG
     Indication: Product used for unknown indication
     Dosage: 210 MILLIGRAM
     Route: 058
     Dates: start: 20221028
  2. ADALIMUMAB [Concomitant]
     Active Substance: ADALIMUMAB
     Indication: Rheumatoid arthritis
     Dosage: 80 MILLIGRAM
  3. PARATHYROID HORMONE [Concomitant]
     Active Substance: PARATHYROID HORMONE
     Dosage: UNK

REACTIONS (14)
  - Renal impairment [Recovering/Resolving]
  - Migraine [Recovering/Resolving]
  - Myalgia [Recovering/Resolving]
  - Nausea [Recovering/Resolving]
  - Drug eruption [Recovered/Resolved]
  - Oral mucosal blistering [Recovering/Resolving]
  - Pyrexia [Recovering/Resolving]
  - Pain in jaw [Unknown]
  - Blood pressure increased [Recovering/Resolving]
  - Malaise [Recovering/Resolving]
  - Tendon disorder [Recovering/Resolving]
  - Stomatitis [Recovering/Resolving]
  - Urticaria [Recovering/Resolving]
  - Arthralgia [Recovering/Resolving]

NARRATIVE: CASE EVENT DATE: 20220101
